FAERS Safety Report 9953142 (Version 2)
Quarter: 2014Q1

REPORT INFORMATION
  Report Type: Report from Study
  Country: US (occurrence: US)
  Receive Date: 20140304
  Receipt Date: 20140304
  Transmission Date: 20141002
  Serious: No
  Sender: FDA-Public Use
  Company Number: US-ABBVIE-13P-163-1065398-00

PATIENT
  Age: 73 Year
  Sex: Female

DRUGS (9)
  1. HUMIRA [Suspect]
     Indication: CROHN^S DISEASE
     Dates: start: 20121030
  2. PANTOPRAZOLE [Concomitant]
     Indication: PRODUCT USED FOR UNKNOWN INDICATION
  3. BUDESONIDE [Concomitant]
     Indication: PRODUCT USED FOR UNKNOWN INDICATION
  4. DICYCLOMINE [Concomitant]
     Indication: CROHN^S DISEASE
  5. TOPROL [Concomitant]
     Indication: SUPRAVENTRICULAR TACHYCARDIA
  6. BUPROPION [Concomitant]
     Indication: MYALGIA
  7. TYLENOL [Concomitant]
     Indication: PAIN
  8. NAPROSYN [Concomitant]
     Indication: PAIN
  9. OTC DAIRY DIGESTION SUPPLEMENT [Concomitant]
     Indication: LACTOSE INTOLERANCE

REACTIONS (2)
  - Abdominal pain [Not Recovered/Not Resolved]
  - Palatal disorder [Unknown]
